FAERS Safety Report 9045810 (Version 1)
Quarter: 2013Q1

REPORT INFORMATION
  Report Type: Report from Study
  Country: US (occurrence: US)
  Receive Date: 20130201
  Receipt Date: 20130201
  Transmission Date: 20140127
  Serious: No
  Sender: FDA-Public Use
  Company Number: US-ABBOTT-12P-163-1001144-00

PATIENT
  Age: 19 Year
  Sex: Female

DRUGS (4)
  1. HUMIRA [Suspect]
     Indication: CROHN^S DISEASE
     Route: 058
     Dates: start: 20120906
  2. HUMIRA [Suspect]
     Dates: start: 20120927
  3. HUMIRA [Suspect]
     Dates: start: 20121011
  4. YAZ [Concomitant]
     Indication: CONTRACEPTION

REACTIONS (3)
  - Furuncle [Recovered/Resolved]
  - Eye infection [Not Recovered/Not Resolved]
  - Furuncle [Not Recovered/Not Resolved]
